FAERS Safety Report 7786305-5 (Version None)
Quarter: 2011Q3

REPORT INFORMATION
  Report Type: 
  Country: None (occurrence: None)
  Receive Date: 20110929
  Receipt Date: 20110921
  Transmission Date: 20111222
  Serious: Yes (Other)
  Sender: FDA-Public Use
  Company Number: PHEH2009US03937

PATIENT
  Sex: Female

DRUGS (14)
  1. FASLODEX [Concomitant]
  2. MUCINEX [Concomitant]
  3. INSULIN [Concomitant]
  4. ZOMETA [Suspect]
     Indication: METASTATIC NEOPLASM
  5. FOSAMAX [Suspect]
  6. NOVOLOG [Concomitant]
  7. LEVEMIR [Concomitant]
  8. ACCUPRIL [Concomitant]
  9. CIPROFLOXACIN [Concomitant]
  10. ZYRTEC [Concomitant]
  11. RESTORIL [Concomitant]
  12. ZANTAC [Concomitant]
  13. LEXAPRO [Concomitant]
  14. CARDIZEM [Concomitant]

REACTIONS (15)
  - DISABILITY [None]
  - ANXIETY [None]
  - CARDIAC MURMUR [None]
  - BRONCHITIS [None]
  - OSTEITIS [None]
  - DIABETES MELLITUS [None]
  - BONE LESION [None]
  - OSTEONECROSIS OF JAW [None]
  - INJURY [None]
  - ANHEDONIA [None]
  - ARTHRITIS [None]
  - NEPHROLITHIASIS [None]
  - METASTASES TO BONE [None]
  - PAIN [None]
  - BREAST CANCER [None]
